FAERS Safety Report 10246854 (Version 1)
Quarter: 2014Q2

REPORT INFORMATION
  Report Type: Spontaneous
  Country: US (occurrence: US)
  Receive Date: 20140619
  Receipt Date: 20140619
  Transmission Date: 20141212
  Serious: No
  Sender: FDA-Public Use
  Company Number: US-JNJFOC-20140604451

PATIENT
  Sex: Female
  Weight: 52.16 kg

DRUGS (14)
  1. UNSPECIFIED FENTANYL TRANSDERMAL SYSTEM [Suspect]
     Indication: COMPLEX REGIONAL PAIN SYNDROME
     Route: 062
     Dates: start: 2014, end: 2014
  2. UNSPECIFIED FENTANYL TRANSDERMAL SYSTEM [Suspect]
     Indication: COMPLEX REGIONAL PAIN SYNDROME
     Route: 062
  3. UNSPECIFIED FENTANYL TRANSDERMAL SYSTEM [Suspect]
     Indication: COMPLEX REGIONAL PAIN SYNDROME
     Route: 062
     Dates: end: 2013
  4. UNSPECIFIED FENTANYL TRANSDERMAL SYSTEM [Suspect]
     Indication: ANKYLOSING SPONDYLITIS
     Route: 062
     Dates: end: 2013
  5. UNSPECIFIED FENTANYL TRANSDERMAL SYSTEM [Suspect]
     Indication: ANKYLOSING SPONDYLITIS
     Route: 062
  6. UNSPECIFIED FENTANYL TRANSDERMAL SYSTEM [Suspect]
     Indication: ANKYLOSING SPONDYLITIS
     Route: 062
     Dates: start: 2014, end: 2014
  7. FLEXERIL [Concomitant]
     Indication: PAIN
     Route: 048
  8. OXYCODONE [Concomitant]
     Indication: PAIN
     Route: 065
  9. NEURONTIN [Concomitant]
     Indication: PAIN
     Route: 065
  10. VICODIN [Concomitant]
     Indication: PAIN
     Route: 065
  11. PERCOCET [Concomitant]
     Indication: PAIN
     Route: 065
  12. CELEBREX [Concomitant]
     Indication: PAIN
     Route: 065
  13. WATSON FENTANYL TRANSDERMAL SYSTEM [Concomitant]
     Indication: COMPLEX REGIONAL PAIN SYNDROME
     Route: 062
     Dates: start: 2014
  14. WATSON FENTANYL TRANSDERMAL SYSTEM [Concomitant]
     Indication: ANKYLOSING SPONDYLITIS
     Route: 062
     Dates: start: 2014

REACTIONS (4)
  - Drug dose omission [Recovered/Resolved]
  - Pain [Not Recovered/Not Resolved]
  - Weight increased [Recovering/Resolving]
  - Product quality issue [Unknown]
